FAERS Safety Report 9060302 (Version 1)
Quarter: 2013Q1

REPORT INFORMATION
  Report Type: Spontaneous
  Country: US (occurrence: None)
  Receive Date: 20130207
  Receipt Date: 20130207
  Transmission Date: 20140127
  Serious: Yes (Other)
  Sender: FDA-Public Use
  Company Number: None

PATIENT
  Sex: Female
  Weight: 90.72 kg

DRUGS (1)
  1. ACTOS - 45MG. (TAKEDA PHARM) [Suspect]
     Indication: DIABETES MELLITUS
     Dates: start: 1996, end: 20130103

REACTIONS (3)
  - Chest pain [None]
  - Dyspnoea [None]
  - Eye disorder [None]
